FAERS Safety Report 7617911-6 (Version None)
Quarter: 2011Q3

REPORT INFORMATION
  Report Type: 
  Country: None (occurrence: None)
  Receive Date: 20110718
  Receipt Date: 20110704
  Transmission Date: 20111222
  Serious: Yes (Hospitalization, Other)
  Sender: FDA-Public Use
  Company Number: PHHY2011BR60377

PATIENT
  Sex: Female
  Weight: 98 kg

DRUGS (8)
  1. LOSARTAN [Concomitant]
     Dosage: 1 DF, TID
  2. GALVUS MET [Suspect]
     Indication: DIABETES MELLITUS
     Dosage: 1 DF (850MG OF METF AND 50 MG OF VILD), BID
     Route: 048
     Dates: end: 20110501
  3. OMEPRAZOLE [Concomitant]
     Indication: ABDOMINAL PAIN UPPER
     Dosage: 1 DF DAILY
     Route: 048
  4. GALVUS MET [Suspect]
     Dosage: 1 DF (850MG OF METF AND 50 MG OF VILD), DAILY
     Route: 048
     Dates: start: 20110501
  5. SIMVASTATIN [Concomitant]
     Dosage: 1 DF DAILY
     Route: 048
  6. DIOVAN [Suspect]
     Indication: HYPERTENSION
     Dosage: 1 DF, 320 MG DAILY
     Route: 048
     Dates: start: 20110101, end: 20110501
  7. RASILEZ [Suspect]
     Indication: HYPERTENSION
     Dosage: 1 DF, 150 MG DAILY
     Route: 048
     Dates: start: 20110101, end: 20110501
  8. DIAMICRON [Concomitant]
     Indication: DIABETES MELLITUS
     Dosage: 2 TABLETS IN UNIQUE DOSE
     Route: 048

REACTIONS (2)
  - ABDOMINAL PAIN UPPER [None]
  - MYOCARDIAL ISCHAEMIA [None]
